FAERS Safety Report 25674902 (Version 5)
Quarter: 2025Q4

REPORT INFORMATION
  Report Type: Spontaneous
  Country: US (occurrence: US)
  Receive Date: 20250813
  Receipt Date: 20251226
  Transmission Date: 20260118
  Serious: No
  Sender: LUPIN
  Company Number: US-LUPIN PHARMACEUTICALS INC.-2025-07121

PATIENT

DRUGS (3)
  1. TOLVAPTAN [Suspect]
     Active Substance: TOLVAPTAN
     Indication: Congenital cystic kidney disease
     Dosage: 45 MILLIGRAM, QD (45 MG TABLET BY MOUTH UPON WAKING UP)
     Route: 061
  2. TOLVAPTAN [Suspect]
     Active Substance: TOLVAPTAN
     Indication: Congenital cystic kidney disease
     Dosage: 15 MILLIGRAM, QD (ONE 15 MG TABLET 8 HOURS LATER)
     Route: 061
  3. JYNARQUE [Concomitant]
     Active Substance: TOLVAPTAN
     Indication: Product used for unknown indication
     Dosage: (45 MG-15 MG TABLET PACK)
     Route: 065

REACTIONS (10)
  - Dry mouth [Unknown]
  - Pollakiuria [Unknown]
  - Decreased appetite [Not Recovered/Not Resolved]
  - Sleep disorder [Unknown]
  - Thirst [Unknown]
  - Product dose omission issue [Unknown]
  - Fatigue [Unknown]
  - Headache [Unknown]
  - Nausea [Unknown]
  - Vomiting [Unknown]
